FAERS Safety Report 12787349 (Version 1)
Quarter: 2016Q3

REPORT INFORMATION
  Report Type: Spontaneous
  Country: HU (occurrence: HU)
  Receive Date: 20160928
  Receipt Date: 20160928
  Transmission Date: 20161109
  Serious: No
  Sender: FDA-Public Use
  Company Number: HU-TOLMAR, INC.-2016HU002015

PATIENT
  Sex: Male

DRUGS (2)
  1. DIPHERELINE [Concomitant]
     Indication: PRODUCT USED FOR UNKNOWN INDICATION
     Route: 065
  2. ELIGARD [Suspect]
     Active Substance: LEUPROLIDE ACETATE
     Indication: PROSTATE CANCER
     Route: 058

REACTIONS (4)
  - Prostatic specific antigen increased [Unknown]
  - Injection site nodule [Unknown]
  - Hot flush [Unknown]
  - Hyperhidrosis [Unknown]
